FAERS Safety Report 14681641 (Version 3)
Quarter: 2018Q2

REPORT INFORMATION
  Report Type: Spontaneous
  Country: CH (occurrence: CH)
  Receive Date: 20180326
  Receipt Date: 20180403
  Transmission Date: 20180711
  Serious: Yes (Hospitalization, Other)
  Sender: FDA-Public Use
  Company Number: CH-PFIZER INC-2018117792

PATIENT
  Age: 83 Year
  Sex: Female

DRUGS (10)
  1. XARELTO [Suspect]
     Active Substance: RIVAROXABAN
     Indication: ATRIAL FIBRILLATION
     Dosage: 10MG, 1X/DAY
     Route: 048
     Dates: start: 20170911, end: 20180306
  2. CALCIMAGON /00751501/ [Suspect]
     Active Substance: CALCIUM CARBONATE
     Dosage: 500MG/800 E ONCE DAILY
     Route: 048
  3. CIPRALEX [Suspect]
     Active Substance: ESCITALOPRAM OXALATE
     Dosage: 5MG, 1X/DAY
     Route: 048
     Dates: end: 20180307
  4. ALDACTONE [Suspect]
     Active Substance: SPIRONOLACTONE
     Dosage: 25MG, 1X/DAY
     Route: 048
     Dates: start: 2017, end: 20180307
  5. PANTOPRAZOL SANDOZ [Suspect]
     Active Substance: PANTOPRAZOLE SODIUM
     Dosage: 20MG, 1X/DAY
     Route: 048
     Dates: start: 2017
  6. ASPIRIN CARDIO [Suspect]
     Active Substance: ASPIRIN
     Indication: CAROTID ARTERY STENOSIS
     Dosage: 100MG, 1X/DAY
     Route: 048
     Dates: end: 20180305
  7. REMERON [Suspect]
     Active Substance: MIRTAZAPINE
     Dosage: 15MG, 1X/DAY
     Route: 048
  8. RISPERDAL [Suspect]
     Active Substance: RISPERIDONE
     Dosage: 1MG, 1X/DAY
     Route: 048
  9. DAFALGAN [Suspect]
     Active Substance: ACETAMINOPHEN
     Dosage: 500MG, 4X/DAY
     Route: 048
     Dates: end: 20180306
  10. TOREM /01036501/ [Suspect]
     Active Substance: TORSEMIDE
     Indication: CARDIOMYOPATHY
     Dosage: ^X5 MG 4-2-0^
     Route: 048
     Dates: end: 20180306

REACTIONS (2)
  - Thrombocytopenia [Not Recovered/Not Resolved]
  - Cardiac failure [Unknown]

NARRATIVE: CASE EVENT DATE: 20170907
